FAERS Safety Report 16058851 (Version 2)
Quarter: 2019Q2

REPORT INFORMATION
  Report Type: Report from Study
  Country: EG (occurrence: EG)
  Receive Date: 20190311
  Receipt Date: 20190617
  Transmission Date: 20190711
  Serious: Yes (Hospitalization)
  Sender: FDA-Public Use
  Company Number: EG-ELI_LILLY_AND_COMPANY-EG201903001938

PATIENT
  Sex: Female

DRUGS (7)
  1. CALCIMAX CALCIUM CITRATE [Concomitant]
     Indication: PRODUCT USED FOR UNKNOWN INDICATION
     Dosage: UNK
  2. ONE ALPHA [Concomitant]
     Active Substance: ALFACALCIDOL
     Indication: PRODUCT USED FOR UNKNOWN INDICATION
  3. TERIPARATIDE [Suspect]
     Active Substance: TERIPARATIDE
     Indication: OSTEOPOROSIS
     Dosage: 20 UG, BID
     Route: 058
     Dates: start: 201809
  4. OSTEOCARE [CALCIUM;COLECALCIFEROL;MAGNESIUM;Z [Concomitant]
     Indication: PRODUCT USED FOR UNKNOWN INDICATION
     Dosage: UNK
  5. DEVAROL [Concomitant]
     Indication: PRODUCT USED FOR UNKNOWN INDICATION
     Dosage: UNK, UNKNOWN (EVERY 15 DAYS)
     Route: 030
  6. EUTHYROX [Concomitant]
     Active Substance: LEVOTHYROXINE SODIUM
     Indication: PRODUCT USED FOR UNKNOWN INDICATION
     Dosage: 150 MG, EACH MORNING
  7. CALCIMAX CALCIUM CARBONATE [Concomitant]
     Indication: PRODUCT USED FOR UNKNOWN INDICATION
     Dosage: UNK

REACTIONS (21)
  - Blood calcium decreased [Recovered/Resolved]
  - Hypoaesthesia [Recovered/Resolved]
  - Pain [Not Recovered/Not Resolved]
  - Blood calcium abnormal [Unknown]
  - Asthenia [Recovered/Resolved]
  - Gait inability [Not Recovered/Not Resolved]
  - Hypoaesthesia [Recovered/Resolved]
  - Seizure [Unknown]
  - Blood calcium decreased [Recovered/Resolved]
  - Hypoaesthesia [Not Recovered/Not Resolved]
  - Product dose omission [Recovered/Resolved]
  - Product dose omission [Recovered/Resolved]
  - Eye disorder [Recovered/Resolved]
  - Bone pain [Recovered/Resolved]
  - Fatigue [Recovered/Resolved]
  - Product dose omission [Unknown]
  - Eye disorder [Recovered/Resolved]
  - Muscle spasms [Recovered/Resolved]
  - Prescribed overdose [Recovering/Resolving]
  - Bone pain [Recovered/Resolved]
  - Muscle spasms [Recovered/Resolved]

NARRATIVE: CASE EVENT DATE: 201809
